FAERS Safety Report 6089551-4 (Version None)
Quarter: 2009Q1

REPORT INFORMATION
  Report Type: 
  Country: None (occurrence: None)
  Receive Date: 20090224
  Receipt Date: 20090209
  Transmission Date: 20090719
  Serious: Yes (Other)
  Sender: FDA-Public Use
  Company Number: JP-GENENTECH-277645

PATIENT
  Age: 88 Year
  Sex: Female

DRUGS (1)
  1. AVASTIN [Suspect]
     Indication: MACULAR OEDEMA
     Dosage: 1 MG, UNK
     Route: 031
     Dates: start: 20070901, end: 20070901

REACTIONS (3)
  - ANEURYSM RUPTURED [None]
  - RETINAL ANEURYSM [None]
  - RETINAL HAEMORRHAGE [None]
